FAERS Safety Report 14454493 (Version 4)
Quarter: 2018Q1

REPORT INFORMATION
  Report Type: Spontaneous
  Country: US (occurrence: US)
  Receive Date: 20180129
  Receipt Date: 20180223
  Transmission Date: 20180509
  Serious: Yes (Hospitalization)
  Sender: FDA-Public Use
  Company Number: US-CELGENEUS-USA-20180108405

PATIENT
  Age: 75 Year
  Sex: Female

DRUGS (2)
  1. PREDNISONE. [Concomitant]
     Active Substance: PREDNISONE
     Indication: PRODUCT USED FOR UNKNOWN INDICATION
     Route: 065
  2. OTEZLA [Suspect]
     Active Substance: APREMILAST
     Indication: PSORIASIS
     Dosage: 60 MILLIGRAM
     Route: 048
     Dates: start: 20150122

REACTIONS (8)
  - Loss of consciousness [Unknown]
  - Blood glucose abnormal [Unknown]
  - Escherichia infection [Unknown]
  - Hypotension [Unknown]
  - Decreased appetite [Unknown]
  - Arthritis [Recovered/Resolved]
  - Vertigo [Unknown]
  - Gastric disorder [Unknown]

NARRATIVE: CASE EVENT DATE: 20170927
